FAERS Safety Report 9479216 (Version 2)
Quarter: 2014Q1

REPORT INFORMATION
  Report Type: Spontaneous
  Country: US (occurrence: US)
  Receive Date: 20130827
  Receipt Date: 20140211
  Transmission Date: 20141002
  Serious: Yes (Hospitalization)
  Sender: FDA-Public Use
  Company Number: US-B.I. PHARMACEUTICALS,INC./RIDGEFIELD-2013-BI-26227BP

PATIENT
  Age: 64 Year
  Sex: Male
  Weight: 99.79 kg

DRUGS (5)
  1. PRADAXA [Suspect]
     Indication: ATRIAL FIBRILLATION
     Dosage: 300 MG
     Route: 048
     Dates: start: 20111020, end: 20121009
  2. DILTIAZEM ER [Concomitant]
     Dates: start: 20111105
  3. LISINOPRIL [Concomitant]
     Dates: start: 20111025
  4. PANTOPRAZOLE [Concomitant]
     Dates: start: 20120203
  5. PRAVASTATIN [Concomitant]
     Dates: start: 20120411

REACTIONS (2)
  - Lower gastrointestinal haemorrhage [Unknown]
  - Anaemia [Unknown]
